FAERS Safety Report 9199289 (Version 1)
Quarter: 2013Q1

REPORT INFORMATION
  Report Type: Spontaneous
  Country: FR (occurrence: None)
  Receive Date: 20130326
  Receipt Date: 20130326
  Transmission Date: 20140127
  Serious: Yes (Hospitalization)
  Sender: FDA-Public Use
  Company Number: DSM-2013-00339

PATIENT
  Age: 76 Year
  Sex: Female

DRUGS (5)
  1. COOLMETEC [Suspect]
     Indication: PRODUCT USED FOR UNKNOWN INDICATION
     Route: 048
     Dates: start: 201204
  2. INIPOMP [Suspect]
     Indication: PRODUCT USED FOR UNKNOWN INDICATION
     Route: 047
     Dates: start: 201204
  3. PRADAXA [Suspect]
     Indication: PRODUCT USED FOR UNKNOWN INDICATION
     Route: 048
     Dates: start: 201208
  4. FLECAINE [Concomitant]
  5. CRESTOR (ROSUVASTATIN) (10 MILLIGRAM, TABLET) (ROSUVASTATIN) [Concomitant]

REACTIONS (3)
  - Anaemia [None]
  - Angina unstable [None]
  - Myocardial ischaemia [None]
